FAERS Safety Report 10223687 (Version 2)
Quarter: 2014Q2

REPORT INFORMATION
  Report Type: Spontaneous
  Country: GB (occurrence: None)
  Receive Date: 20140605
  Receipt Date: 20140612
  Transmission Date: 20141212
  Serious: Yes (Life-Threatening)
  Sender: FDA-Public Use
  Company Number: 2014-PEL-000098

PATIENT
  Age: 12 Year
  Sex: Male
  Weight: 24 kg

DRUGS (6)
  1. SEVOFLURANE [Suspect]
     Indication: GENERAL ANAESTHESIA
     Dosage: UNKNOWN
     Dates: start: 20130924, end: 20130924
  2. CISATRACURIUM [Suspect]
     Indication: GENERAL ANAESTHESIA
     Route: 042
     Dates: start: 20130924, end: 20130924
  3. FENTANYL (FENTANYL) [Suspect]
     Indication: GENERAL ANAESTHESIA
     Route: 042
     Dates: start: 20130924, end: 20130924
  4. NITROUS OXIDE [Suspect]
     Indication: GENERAL ANAESTHESIA
     Dates: start: 20130924, end: 20130924
  5. BRUFEN [Concomitant]
  6. PARACETAMOL (PARACETAMOL) [Concomitant]

REACTIONS (3)
  - Anaphylactic reaction [None]
  - Off label use [None]
  - Incorrect route of drug administration [None]
